FAERS Safety Report 4583170-4 (Version None)
Quarter: 2005Q1

REPORT INFORMATION
  Report Type: 
  Country: None (occurrence: None)
  Receive Date: 20050125
  Receipt Date: 20041005
  Transmission Date: 20050727
  Serious: No
  Sender: FDA-Public Use
  Company Number: US_00336840

PATIENT
  Age: 52 Year
  Sex: Female
  Weight: 48 kg

DRUGS (6)
  1. HUMALOG [Suspect]
     Indication: DIABETES MELLITUS INSULIN-DEPENDENT
     Dosage: 36 U/DAY
     Dates: start: 19970101
  2. HUMULIN N [Suspect]
     Indication: DIABETES MELLITUS INSULIN-DEPENDENT
     Dosage: 28 U/DAY
     Dates: start: 20000201
  3. NOVOLIN N (INSULIN INJECTION, ISOPHANE) [Concomitant]
  4. LANTUS [Concomitant]
  5. FORTEO [Suspect]
     Indication: OSTEOPOROSIS
     Dosage: 20 UG/L DAY
     Dates: start: 20040824
  6. NOVOLOG [Concomitant]

REACTIONS (4)
  - BLOOD GLUCOSE INCREASED [None]
  - BRONCHITIS [None]
  - CONTUSION [None]
  - INJECTION SITE HAEMORRHAGE [None]
